FAERS Safety Report 9476620 (Version 1)
Quarter: 2013Q3

REPORT INFORMATION
  Report Type: Spontaneous
  Country: US (occurrence: None)
  Receive Date: 20130823
  Receipt Date: 20130823
  Transmission Date: 20140515
  Serious: Yes (Hospitalization)
  Sender: FDA-Public Use
  Company Number: None

PATIENT
  Age: 61 Year
  Sex: Female
  Weight: 78.47 kg

DRUGS (3)
  1. PROLIA [Suspect]
     Indication: OSTEOPENIA
     Dates: start: 20130416
  2. PROLIA [Suspect]
     Indication: OSTEOPOROSIS
     Dates: start: 20130416
  3. PROLIA [Suspect]
     Indication: CONDITION AGGRAVATED
     Dates: start: 20130416

REACTIONS (8)
  - Sinusitis [None]
  - Bronchitis [None]
  - Ingrowing nail [None]
  - Drug resistance [None]
  - Abdominal pain [None]
  - Diverticulitis [None]
  - Rash [None]
  - Pruritus [None]
